FAERS Safety Report 6764237-9 (Version None)
Quarter: 2010Q2

REPORT INFORMATION
  Report Type: 
  Country: None (occurrence: None)
  Receive Date: 20100610
  Receipt Date: 20100607
  Transmission Date: 20101027
  Serious: Yes (Other)
  Sender: FDA-Public Use
  Company Number: GB-TEVA-236792ISR

PATIENT
  Age: 58 Year
  Sex: Male

DRUGS (4)
  1. BISOPROLOL [Suspect]
  2. BISOPROLOL [Suspect]
  3. WARFARIN [Suspect]
  4. PROPAFENONE HCL [Suspect]

REACTIONS (1)
  - ATRIAL TACHYCARDIA [None]
